FAERS Safety Report 6647825-X (Version None)
Quarter: 2010Q1

REPORT INFORMATION
  Report Type: 
  Country: None (occurrence: None)
  Receive Date: 20100318
  Receipt Date: 20100303
  Transmission Date: 20100710
  Serious: Yes (Hospitalization)
  Sender: FDA-Public Use
  Company Number: 2009003469

PATIENT
  Age: 57 Year
  Sex: Female

DRUGS (9)
  1. ERLOTINIB HYDROCHLORIDE [Suspect]
     Indication: NON-SMALL CELL LUNG CANCER
     Dosage: QD, ORAL
     Route: 048
     Dates: start: 20090730
  2. GEMCITABINE [Suspect]
     Indication: NON-SMALL CELL LUNG CANCER
     Dosage: 2 GM, INTRAVENOUS
     Route: 042
     Dates: start: 20090716
  3. CARBOPLATIN [Suspect]
     Indication: NON-SMALL CELL LUNG CANCER
     Dosage: 700 UG/KG, INTRAVENOUS
     Route: 042
     Dates: start: 20090716
  4. TRAMADOL HCL [Concomitant]
  5. NEUROBION (NEUROBION FOR INJECTION) [Concomitant]
  6. MULTI-VITAMIN [Concomitant]
  7. FERROUS SULFATE TAB [Concomitant]
  8. DIAMICRON (GLICLAZIDE) [Concomitant]
  9. PIOGLITAZONE HCL [Concomitant]

REACTIONS (6)
  - ANAEMIA [None]
  - ASTHENIA [None]
  - HAEMOPTYSIS [None]
  - MUSCULOSKELETAL PAIN [None]
  - NEUTROPHIL COUNT DECREASED [None]
  - RASH [None]
